FAERS Safety Report 7656405-9 (Version None)
Quarter: 2011Q3

REPORT INFORMATION
  Report Type: 
  Country: None (occurrence: None)
  Receive Date: 20110804
  Receipt Date: 20110727
  Transmission Date: 20111222
  Serious: Yes (Death, Disabling)
  Sender: FDA-Public Use
  Company Number: JP-GLAXOSMITHKLINE-B0716452A

PATIENT
  Sex: Male
  Weight: 52 kg

DRUGS (9)
  1. KYTRIL [Concomitant]
     Dosage: 2MG PER DAY
     Route: 042
     Dates: start: 20050722, end: 20050726
  2. SOLU-CORTEF [Concomitant]
     Dosage: 50MG PER DAY
     Dates: start: 20050723, end: 20050813
  3. FUROSEMIDE [Concomitant]
     Dosage: 40MG PER DAY
     Route: 042
     Dates: start: 20050722, end: 20050905
  4. CYCLOSPORINE [Suspect]
     Indication: IMMUNOSUPPRESSION
     Dosage: 3MGK PER DAY
     Route: 065
     Dates: start: 20050724
  5. METHOTREXATE [Concomitant]
     Indication: IMMUNOSUPPRESSION
     Dosage: 10MGM2 PER DAY
     Route: 065
     Dates: start: 20050726, end: 20050731
  6. VICCLOX [Concomitant]
     Dosage: 250MG PER DAY
     Route: 042
     Dates: start: 20050722, end: 20050829
  7. ALKERAN [Suspect]
     Indication: CORD BLOOD TRANSPLANT THERAPY
     Dosage: 90MGM2 PER DAY
     Route: 042
     Dates: start: 20050722, end: 20050723
  8. PREDNISOLONE [Concomitant]
     Indication: IMMUNOSUPPRESSION
     Dosage: 2MGK PER DAY
     Route: 065
     Dates: start: 20050807
  9. FIRSTCIN [Concomitant]
     Dosage: 3G PER DAY
     Route: 042
     Dates: start: 20050722, end: 20051018

REACTIONS (11)
  - PYREXIA [None]
  - LEUKOENCEPHALOPATHY [None]
  - ALANINE AMINOTRANSFERASE INCREASED [None]
  - PANCREATITIS [None]
  - MUCOUS MEMBRANE DISORDER [None]
  - PANCYTOPENIA [None]
  - ASPARTATE AMINOTRANSFERASE INCREASED [None]
  - THROMBOTIC MICROANGIOPATHY [None]
  - C-REACTIVE PROTEIN INCREASED [None]
  - ACUTE GRAFT VERSUS HOST DISEASE [None]
  - GAMMA-GLUTAMYLTRANSFERASE INCREASED [None]
